FAERS Safety Report 6506643-3 (Version None)
Quarter: 2009Q4

REPORT INFORMATION
  Report Type: 
  Country: None (occurrence: None)
  Receive Date: 20091221
  Receipt Date: 20091215
  Transmission Date: 20100525
  Serious: Yes (Other)
  Sender: FDA-Public Use
  Company Number: FI-ROCHE-672043

PATIENT
  Sex: Male

DRUGS (1)
  1. TAMIFLU [Suspect]
     Indication: INFLUENZA
     Dosage: FREQUENCY AS 1X2
     Route: 048
     Dates: start: 20091118, end: 20091123

REACTIONS (3)
  - DIZZINESS [None]
  - HALLUCINATIONS, MIXED [None]
  - NIGHTMARE [None]
